FAERS Safety Report 8064299-5 (Version None)
Quarter: 2012Q1

REPORT INFORMATION
  Report Type: 
  Country: None (occurrence: None)
  Receive Date: 20120123
  Receipt Date: 20120111
  Transmission Date: 20120608
  Serious: Yes (Hospitalization, Disabling)
  Sender: FDA-Public Use
  Company Number: BR-MEDIMMUNE-MEDI-0013059

PATIENT
  Sex: Male
  Weight: 9.5 kg

DRUGS (4)
  1. SYNAGIS [Suspect]
     Indication: BRONCHOPULMONARY DYSPLASIA
  2. PHENOBARBITAL TAB [Concomitant]
     Route: 050
     Dates: start: 20090601
  3. SYNAGIS [Suspect]
     Route: 058
     Dates: start: 20100701, end: 20100801
  4. CARBAMAZEPINE [Concomitant]
     Indication: CONVULSION
     Dosage: 2 ML IN AM, 2 ML PM, 4 ML NOC
     Dates: start: 20110101

REACTIONS (6)
  - PNEUMONIA ASPIRATION [None]
  - OXYGEN SUPPLEMENTATION [None]
  - COUGH [None]
  - APATHY [None]
  - LISTLESS [None]
  - INCREASED BRONCHIAL SECRETION [None]
